FAERS Safety Report 24755292 (Version 1)
Quarter: 2024Q4

REPORT INFORMATION
  Report Type: Spontaneous
  Country: FR (occurrence: FR)
  Receive Date: 20241219
  Receipt Date: 20241219
  Transmission Date: 20250115
  Serious: Yes (Hospitalization)
  Sender: FERRING
  Company Number: None

PATIENT

DRUGS (7)
  1. FIRMAGON [Suspect]
     Active Substance: DEGARELIX ACETATE
     Indication: Prostate cancer
     Dosage: 80 MG, MONTHLY
     Route: 058
     Dates: start: 202309, end: 20241008
  2. FIRMAGON [Suspect]
     Active Substance: DEGARELIX ACETATE
     Dosage: 240 MG
     Route: 058
     Dates: start: 20230810, end: 20230810
  3. ABIRATERONE ACETATE [Suspect]
     Active Substance: ABIRATERONE ACETATE
     Indication: Prostate cancer
     Dosage: 1 G, 1 TIME DAILY
     Route: 048
     Dates: start: 20230907, end: 20231113
  4. ABIRATERONE ACETATE [Suspect]
     Active Substance: ABIRATERONE ACETATE
     Dosage: 500 MG, 1 TIME DAILY
     Route: 048
     Dates: start: 20231212, end: 20240710
  5. DOCETAXEL [Concomitant]
     Active Substance: DOCETAXEL
     Indication: Prostate cancer
     Dosage: 1 DOSAGE FORM
     Route: 042
     Dates: start: 20231113, end: 20240102
  6. DOCETAXEL [Concomitant]
     Active Substance: DOCETAXEL
     Dosage: 1 DOSAGE FORM
     Route: 042
     Dates: start: 20240123, end: 20240305
  7. TRIPTORELIN [Concomitant]
     Active Substance: TRIPTORELIN
     Indication: Prostate cancer
     Dosage: UNK
     Route: 042
     Dates: start: 20241008

REACTIONS (1)
  - Hepatitis [Recovering/Resolving]

NARRATIVE: CASE EVENT DATE: 20231110
